FAERS Safety Report 13071340 (Version 1)
Quarter: 2016Q4

REPORT INFORMATION
  Report Type: Spontaneous
  Country: TH (occurrence: TH)
  Receive Date: 20161229
  Receipt Date: 20161229
  Transmission Date: 20170207
  Serious: Yes (Other)
  Sender: FDA-Public Use
  Company Number: PHHY2016TH178138

PATIENT
  Age: 54 Year
  Sex: Female

DRUGS (1)
  1. LETROZOLE. [Suspect]
     Active Substance: LETROZOLE
     Indication: BREAST CANCER METASTATIC
     Dosage: UNK
     Route: 065
     Dates: start: 201201

REACTIONS (6)
  - Hepatic cyst [Unknown]
  - Haemangioma [Unknown]
  - Hepatic neoplasm [Unknown]
  - Hepatic mass [Unknown]
  - Malignant pleural effusion [Unknown]
  - Pleural thickening [Unknown]

NARRATIVE: CASE EVENT DATE: 201207
